FAERS Safety Report 19799575 (Version 1)
Quarter: 2021Q3

REPORT INFORMATION
  Report Type: Spontaneous
  Country: US (occurrence: US)
  Receive Date: 20210907
  Receipt Date: 20210907
  Transmission Date: 20211014
  Serious: Yes (Hospitalization, Other)
  Sender: FDA-Public Use
  Company Number: US-INCYTE CORPORATION-2021IN007881

PATIENT

DRUGS (2)
  1. SIROLIMUS. [Concomitant]
     Active Substance: SIROLIMUS
     Indication: PRODUCT USED FOR UNKNOWN INDICATION
     Route: 065
  2. JAKAFI [Suspect]
     Active Substance: RUXOLITINIB
     Dosage: 5 MILLIGRAM, BID
     Route: 048
     Dates: start: 201905

REACTIONS (4)
  - Pancreatitis [Unknown]
  - Type 1 diabetes mellitus [Unknown]
  - Blood triglycerides increased [Unknown]
  - Off label use [Unknown]

NARRATIVE: CASE EVENT DATE: 201905
